FAERS Safety Report 5218200-X (Version None)
Quarter: 2007Q1

REPORT INFORMATION
  Report Type: 
  Country: None (occurrence: None)
  Receive Date: 20061130
  Receipt Date: 20060614
  Transmission Date: 20070707
  Serious: Yes (Hospitalization, Other)
  Sender: FDA-Public Use
  Company Number: US_0412109415

PATIENT
  Age: 48 Year
  Sex: Female
  Weight: 122.4 kg

DRUGS (9)
  1. ZYPREXA [Suspect]
     Indication: DEPRESSION
     Dosage: SEE IMAGE
     Dates: start: 19960718, end: 20030710
  2. ZYPREXA [Suspect]
     Indication: DEPRESSION
     Dosage: SEE IMAGE
     Dates: start: 20010801
  3. ZYPREXA [Suspect]
     Indication: DEPRESSION
     Dosage: SEE IMAGE
     Dates: start: 20021001
  4. EFFEXOR [Concomitant]
  5. REMERON [Concomitant]
  6. NORVASC [Concomitant]
  7. SULINDAC [Concomitant]
  8. HUMULIN 70/30 [Concomitant]
  9. METFORMIN HCL [Concomitant]

REACTIONS (5)
  - ABNORMAL DREAMS [None]
  - CRYING [None]
  - DIABETES MELLITUS NON-INSULIN-DEPENDENT [None]
  - SUICIDAL IDEATION [None]
  - WEIGHT INCREASED [None]
